FAERS Safety Report 9670496 (Version 3)
Quarter: 2014Q1

REPORT INFORMATION
  Report Type: Report from Study
  Country: US (occurrence: US)
  Receive Date: 20131106
  Receipt Date: 20140102
  Transmission Date: 20141002
  Serious: Yes (Hospitalization)
  Sender: FDA-Public Use
  Company Number: US-ROCHE-1210879

PATIENT
  Age: 35 Year
  Sex: Male

DRUGS (14)
  1. RANIBIZUMAB [Suspect]
     Indication: DIABETIC RETINOPATHY
     Route: 050
     Dates: start: 20121128
  2. RANIBIZUMAB [Suspect]
     Route: 050
     Dates: start: 20120103
  3. RANIBIZUMAB [Suspect]
     Route: 050
     Dates: start: 20130328
  4. RANIBIZUMAB [Suspect]
     Route: 050
     Dates: start: 20130425
  5. RANIBIZUMAB [Suspect]
     Route: 050
     Dates: start: 20130820
  6. RANIBIZUMAB [Suspect]
     Route: 050
     Dates: start: 20131126
  7. BEVACIZUMAB [Suspect]
     Indication: DIABETIC RETINOPATHY
     Route: 050
     Dates: start: 20121205
  8. BEVACIZUMAB [Suspect]
     Route: 050
     Dates: start: 20130404
  9. BEVACIZUMAB [Suspect]
     Route: 050
     Dates: start: 20130827
  10. SIMVASTATIN [Concomitant]
     Route: 048
  11. INSULIN GLARGINE [Concomitant]
     Route: 023
  12. INSULIN ASPART [Concomitant]
     Route: 023
  13. KLOR-CON [Concomitant]
     Route: 048
  14. BYSTOLIC [Concomitant]
     Route: 048

REACTIONS (3)
  - Myocardial infarction [Recovered/Resolved]
  - Infection [Recovered/Resolved]
  - Renal failure [Not Recovered/Not Resolved]
